FAERS Safety Report 10714085 (Version 1)
Quarter: 2015Q1

REPORT INFORMATION
  Report Type: Spontaneous
  Country: US (occurrence: US)
  Receive Date: 20150115
  Receipt Date: 20150115
  Transmission Date: 20150721
  Serious: Yes (Death)
  Sender: FDA-Public Use
  Company Number: US-PFIZER INC-2015008418

PATIENT
  Age: 44 Year
  Sex: Male

DRUGS (7)
  1. HEROIN [Suspect]
     Active Substance: DIACETYLMORPHINE
  2. DEXTROMETHORPHAN HBR [Suspect]
     Active Substance: DEXTROMETHORPHAN HYDROBROMIDE
  3. ACETAMINOPHEN. [Suspect]
     Active Substance: ACETAMINOPHEN
  4. HYDROCODONE [Suspect]
     Active Substance: HYDROCODONE
  5. CODEINE [Suspect]
     Active Substance: CODEINE
  6. OXYCODONE [Suspect]
     Active Substance: OXYCODONE
  7. COCAINE [Suspect]
     Active Substance: COCAINE

REACTIONS (1)
  - Drug abuse [Fatal]

NARRATIVE: CASE EVENT DATE: 2013
